FAERS Safety Report 19244214 (Version 2)
Quarter: 2021Q2

REPORT INFORMATION
  Report Type: Other
  Country: DE (occurrence: DE)
  Receive Date: 20210512
  Receipt Date: 20210518
  Transmission Date: 20210717
  Serious: Yes (Hospitalization)
  Sender: FDA-Public Use
  Company Number: DE-CELLTRION INC.-2021DE006068

PATIENT

DRUGS (7)
  1. TRASTUZUMAB (UNKNOWN) [Suspect]
     Active Substance: TRASTUZUMAB
     Indication: BREAST CANCER
     Dosage: 560 MG EVERY 3 WEEKS
     Route: 042
     Dates: start: 20180117
  2. PERTUZUMAB. [Suspect]
     Active Substance: PERTUZUMAB
     Indication: BREAST CANCER
     Dosage: 420 MG EVERY 3 WEEKS (MOST RECENT DOSE ON 29 MAR 2018)
     Route: 042
     Dates: start: 20180117
  3. DOCETAXEL. [Suspect]
     Active Substance: DOCETAXEL
     Dosage: 105 MG EVERY 3 WEEKS (MOST RECENT DOSE ON 29 MAR 2018)
     Route: 042
     Dates: start: 20180117
  4. CARBOPLATIN. [Suspect]
     Active Substance: CARBOPLATIN
     Indication: BREAST CANCER
     Dosage: 600 MG EVERY 3 WEEKS
     Route: 042
     Dates: start: 20180419
  5. DOCETAXEL. [Suspect]
     Active Substance: DOCETAXEL
     Indication: BREAST CANCER
     Dosage: 125 MG EVERY 3 WEEKS
     Route: 042
     Dates: start: 20180117
  6. PERTUZUMAB. [Suspect]
     Active Substance: PERTUZUMAB
     Dosage: 840 MG EVERY 3 WEEKS
     Route: 042
     Dates: start: 20180117
  7. TRASTUZUMAB. [Suspect]
     Active Substance: TRASTUZUMAB
     Indication: BREAST CANCER
     Dosage: 420 MG EVERY 3 WEEKS (MOST RECENT DOSE ON 29 MAR 2018)
     Route: 042
     Dates: start: 20180117

REACTIONS (7)
  - Duodenal ulcer [Recovered/Resolved]
  - Anaemia [Recovered/Resolved]
  - Gastric ulcer [Recovered/Resolved]
  - Diarrhoea [Recovered/Resolved]
  - Vomiting [Recovered/Resolved]
  - Nausea [Recovered/Resolved]
  - Oedema peripheral [Recovered/Resolved]

NARRATIVE: CASE EVENT DATE: 20180124
